FAERS Safety Report 7929205-X (Version None)
Quarter: 2011Q4

REPORT INFORMATION
  Report Type: 
  Country: None (occurrence: None)
  Receive Date: 20111120
  Receipt Date: 20111107
  Transmission Date: 20120403
  Serious: Yes (Hospitalization)
  Sender: FDA-Public Use
  Company Number: US-ELI_LILLY_AND_COMPANY-US201101004457

PATIENT
  Sex: Female

DRUGS (11)
  1. FOLIC ACID [Concomitant]
  2. FOLBEE [Concomitant]
  3. FORTEO [Suspect]
     Indication: OSTEOPOROSIS
     Dosage: 20 UG, DAILY (1/D)
  4. CALCIUM [Concomitant]
  5. ANTIDEPRESSANTS [Concomitant]
  6. ASPIRIN [Concomitant]
  7. PAXIL [Concomitant]
  8. ZOLOFT [Concomitant]
     Dosage: 100 MG, UNK
  9. PROTONIX [Concomitant]
  10. NEXIUM [Concomitant]
     Indication: GASTROOESOPHAGEAL REFLUX DISEASE
  11. VITAMIN D [Concomitant]

REACTIONS (6)
  - PNEUMONIA [None]
  - CELLULITIS [None]
  - FALL [None]
  - WOUND CLOSURE [None]
  - THROMBOSIS [None]
  - OEDEMA PERIPHERAL [None]
